FAERS Safety Report 10956582 (Version 1)
Quarter: 2015Q1

REPORT INFORMATION
  Report Type: Spontaneous
  Country: None (occurrence: None)
  Receive Date: 20150325
  Receipt Date: 20150325
  Transmission Date: 20150721
  Serious: Yes (Hospitalization)
  Sender: FDA-Public Use
  Company Number: None

PATIENT
  Age: 19 Year
  Sex: Female
  Weight: 52.6 kg

DRUGS (2)
  1. TYGACIL [Suspect]
     Active Substance: TIGECYCLINE
     Indication: CELLULITIS
     Route: 042
     Dates: start: 20150225, end: 20150304
  2. CLINDAMYCIN [Concomitant]
     Active Substance: CLINDAMYCIN\CLINDAMYCIN PHOSPHATE

REACTIONS (6)
  - Abdominal pain [None]
  - Nausea [None]
  - Pancreatitis acute [None]
  - Lipase increased [None]
  - Amylase increased [None]
  - Vomiting [None]

NARRATIVE: CASE EVENT DATE: 20150302
